FAERS Safety Report 6138323-0 (Version None)
Quarter: 2009Q1

REPORT INFORMATION
  Report Type: 
  Country: None (occurrence: None)
  Receive Date: 20090327
  Receipt Date: 20090327
  Transmission Date: 20090719
  Serious: Yes (Other)
  Sender: FDA-Public Use
  Company Number: None

PATIENT
  Sex: Male
  Weight: 78.4723 kg

DRUGS (1)
  1. RAMIPRIL [Suspect]
     Dosage: 5 MG QD PO
     Route: 048
     Dates: start: 20090301, end: 20090324

REACTIONS (4)
  - DISEASE RECURRENCE [None]
  - DIZZINESS [None]
  - HYPOTENSION [None]
  - SYNCOPE [None]
